FAERS Safety Report 9491959 (Version 4)
Quarter: 2013Q4

REPORT INFORMATION
  Report Type: Report from Study
  Country: CH (occurrence: CH)
  Receive Date: 20130830
  Receipt Date: 20131118
  Transmission Date: 20140711
  Serious: Yes (Hospitalization)
  Sender: FDA-Public Use
  Company Number: CH-ROCHE-1250526

PATIENT
  Age: 74 Year
  Sex: Male
  Weight: 68 kg

DRUGS (7)
  1. ALLOPURINOL [Suspect]
     Indication: GOUT
     Route: 065
     Dates: end: 20130717
  2. PREDNISONE [Concomitant]
     Route: 065
  3. NEXIUM [Concomitant]
  4. SIFROL [Concomitant]
  5. VITAMIN D3 [Concomitant]
  6. CALCIMAGON-D3 [Concomitant]
  7. TOCILIZUMAB [Suspect]
     Indication: MICROSCOPIC POLYANGIITIS
     Dosage: LAST INFUSION PRIOR TO SAE ON 08/JUL/2013.
     Route: 065
     Dates: start: 20130516

REACTIONS (1)
  - Stevens-Johnson syndrome [Recovered/Resolved]
